FAERS Safety Report 4831169-2 (Version None)
Quarter: 2005Q4

REPORT INFORMATION
  Report Type: 
  Country: None (occurrence: None)
  Receive Date: 20051118
  Receipt Date: 20050919
  Transmission Date: 20060501
  Serious: Yes (Hospitalization)
  Sender: FDA-Public Use
  Company Number: FR-BRISTOL-MYERS SQUIBB COMPANY-13115944

PATIENT
  Age: 36 Year
  Sex: Female

DRUGS (3)
  1. ABILIFY [Suspect]
     Indication: SCHIZOPHRENIA
     Route: 048
     Dates: start: 20050803, end: 20050908
  2. XANAX [Concomitant]
     Indication: ANXIETY
     Dates: start: 20050701
  3. INOVAN [Concomitant]
     Indication: INSOMNIA
     Dates: start: 20040601

REACTIONS (6)
  - DELIRIUM [None]
  - HALLUCINATION [None]
  - INSOMNIA [None]
  - MENTAL DISORDER [None]
  - MULTIPLE FRACTURES [None]
  - SUICIDE ATTEMPT [None]
